FAERS Safety Report 5284036-7 (Version None)
Quarter: 2007Q2

REPORT INFORMATION
  Report Type: 
  Country: None (occurrence: None)
  Receive Date: 20070402
  Receipt Date: 20070321
  Transmission Date: 20071010
  Serious: Yes (Hospitalization, Other)
  Sender: FDA-Public Use
  Company Number: GB-PFIZER INC-2007023275

PATIENT
  Sex: Female

DRUGS (1)
  1. CARDURA [Suspect]
     Route: 048

REACTIONS (5)
  - ALOPECIA [None]
  - BLOOD COUNT ABNORMAL [None]
  - HEART RATE INCREASED [None]
  - PRESYNCOPE [None]
  - RHEUMATOID ARTHRITIS [None]
